FAERS Safety Report 10623963 (Version 1)
Quarter: 2014Q4

REPORT INFORMATION
  Report Type: Spontaneous
  Country: US (occurrence: US)
  Receive Date: 20141203
  Receipt Date: 20141203
  Transmission Date: 20150529
  Serious: No
  Sender: FDA-Public Use
  Company Number: US-SA-2014SA065754

PATIENT
  Age: 6 Year
  Sex: Male

DRUGS (1)
  1. RENVELA [Suspect]
     Active Substance: SEVELAMER CARBONATE
     Indication: RENAL DISORDER
     Dosage: ROUTE-FEEDING TUBE

REACTIONS (5)
  - Feeding tube complication [Unknown]
  - Product formulation issue [Unknown]
  - Incorrect route of drug administration [Unknown]
  - Drug administered to patient of inappropriate age [Unknown]
  - Hyperphosphataemia [Unknown]
